FAERS Safety Report 7290902-3 (Version None)
Quarter: 2011Q1

REPORT INFORMATION
  Report Type: 
  Country: None (occurrence: None)
  Receive Date: 20110214
  Receipt Date: 20110203
  Transmission Date: 20110831
  Serious: Yes (Hospitalization, Other)
  Sender: FDA-Public Use
  Company Number: US-ASTRAZENECA-2010SE58395

PATIENT
  Sex: Female

DRUGS (13)
  1. PROTONIX [Concomitant]
     Indication: CROHN'S DISEASE
  2. DIOVAN HCT [Concomitant]
     Indication: HYPERTENSION
  3. TOPROL-XL [Suspect]
     Route: 048
  4. CRESTOR [Suspect]
     Route: 048
  5. PRILOSEC [Concomitant]
     Indication: CROHN'S DISEASE
     Route: 048
  6. DIOVAN [Concomitant]
     Indication: HYPERTENSION
  7. LANTUS [Concomitant]
     Indication: CROHN'S DISEASE
  8. HUMALOG [Concomitant]
     Indication: CROHN'S DISEASE
  9. DIOVAN HCT [Concomitant]
     Indication: SWELLING
  10. TENEX [Concomitant]
     Indication: HYPERTENSION
  11. LEVOXYL [Concomitant]
     Indication: THYROID DISORDER
  12. TOPROL-XL [Suspect]
     Indication: HYPERTENSION
     Route: 048
  13. PROTONIX [Concomitant]
     Indication: HYPERTENSION

REACTIONS (4)
  - PNEUMONIA [None]
  - DRUG DOSE OMISSION [None]
  - HEART RATE DECREASED [None]
  - CEREBROVASCULAR ACCIDENT [None]
